FAERS Safety Report 7015443-X (Version None)
Quarter: 2010Q3

REPORT INFORMATION
  Report Type: 
  Country: None (occurrence: None)
  Receive Date: 20100927
  Receipt Date: 20100915
  Transmission Date: 20110219
  Serious: Yes (Hospitalization)
  Sender: FDA-Public Use
  Company Number: US-ELI_LILLY_AND_COMPANY-US201007002850

PATIENT
  Sex: Female

DRUGS (23)
  1. FORTEO [Suspect]
     Indication: OSTEOPOROSIS
     Dosage: 20 UG, DAILY (1/D)
     Route: 065
     Dates: start: 20091102, end: 20100602
  2. METFORMIN [Concomitant]
  3. LISINOPRIL [Concomitant]
  4. METOPROLOL TARTRATE [Concomitant]
     Dosage: 50 MG, 2/D
     Route: 048
  5. NORVASC [Concomitant]
  6. ZOCOR [Concomitant]
  7. JANUVIA [Concomitant]
     Dosage: 50 MG, DAILY (1/D)
     Route: 048
  8. VITAMIN E /001105/ [Concomitant]
     Dosage: 400 U, DAILY (1/D)
     Route: 048
  9. CALCIUM [Concomitant]
  10. PRILOSEC [Concomitant]
  11. OSCAL /00108001/ [Concomitant]
  12. MULTI-VITAMIN [Concomitant]
     Dosage: UNK, DAILY (1/D)
  13. TYLENOL (CAPLET) [Concomitant]
     Indication: PAIN
     Dosage: 650 MG, AS NEEDED
     Route: 048
  14. VITAMIN D [Concomitant]
     Dosage: UNK, 2/D
     Route: 048
  15. CARDIZEM CD [Concomitant]
     Dosage: 180 MG, DAILY (1/D)
     Route: 048
  16. ARIXTRA [Concomitant]
     Dosage: 2.5 MG, DAILY (1/D)
     Route: 048
  17. ZESTRIL [Concomitant]
     Dosage: 20 MG, DAILY (1/D)
     Route: 048
  18. ZOFRAN [Concomitant]
     Indication: NAUSEA
     Dosage: 4 MG, AS NEEDED
     Route: 048
  19. PERCOCET [Concomitant]
     Dosage: 1 D/F, AS NEEDED
     Route: 048
  20. PROTONIX [Concomitant]
     Dosage: 40 MG, DAILY (1/D)
     Route: 048
  21. FIBERCON [Concomitant]
     Dosage: UNK, DAILY (1/D)
  22. SENOKOT [Concomitant]
     Dosage: UNK, EACH EVENING
     Route: 048
  23. COUMADIN [Concomitant]
     Dosage: 5 MG, DAILY (1/D)
     Route: 048

REACTIONS (6)
  - ATRIAL FIBRILLATION [None]
  - FALL [None]
  - FEMORAL NECK FRACTURE [None]
  - GENERAL PHYSICAL CONDITION ABNORMAL [None]
  - HYPOACUSIS [None]
  - PAIN [None]
